FAERS Safety Report 7169198-9 (Version None)
Quarter: 2010Q4

REPORT INFORMATION
  Report Type: 
  Country: None (occurrence: None)
  Receive Date: 20101216
  Receipt Date: 20100118
  Transmission Date: 20110411
  Serious: No
  Sender: FDA-Public Use
  Company Number: US-AMGEN-KDL386584

PATIENT

DRUGS (2)
  1. ENBREL [Suspect]
     Indication: RHEUMATOID ARTHRITIS
     Dosage: UNK UNK, UNK
     Dates: start: 20090630
  2. METHOTREXATE [Concomitant]
     Dosage: UNK UNK, UNK
     Dates: start: 20090501

REACTIONS (6)
  - ERYTHEMA [None]
  - HYPERSENSITIVITY [None]
  - OEDEMA PERIPHERAL [None]
  - PNEUMONIA [None]
  - SKIN INFECTION [None]
  - UPPER RESPIRATORY TRACT INFECTION [None]
